FAERS Safety Report 9878831 (Version 1)
Quarter: 2014Q1

REPORT INFORMATION
  Report Type: Spontaneous
  Country: DK (occurrence: DK)
  Receive Date: 20140206
  Receipt Date: 20140206
  Transmission Date: 20141002
  Serious: Yes (Hospitalization, Disabling)
  Sender: FDA-Public Use
  Company Number: DK-GLAXOSMITHKLINE-B0966733A

PATIENT
  Age: 42 Year
  Sex: Male

DRUGS (1)
  1. NEOTIGASON [Suspect]
     Indication: ICHTHYOSIS
     Route: 065
     Dates: start: 1981, end: 20110607

REACTIONS (9)
  - Blindness unilateral [Not Recovered/Not Resolved]
  - Corneal transplant [Recovered/Resolved]
  - Eye prosthesis insertion [Not Recovered/Not Resolved]
  - Intraocular lens implant [Not Recovered/Not Resolved]
  - Corneal perforation [Unknown]
  - Keratitis [Unknown]
  - Dry eye [Not Recovered/Not Resolved]
  - Ectropion [Unknown]
  - Visual acuity reduced [Not Recovered/Not Resolved]
